FAERS Safety Report 19273632 (Version 1)
Quarter: 2021Q2

REPORT INFORMATION
  Report Type: Report from Study
  Country: US (occurrence: US)
  Receive Date: 20210519
  Receipt Date: 20210519
  Transmission Date: 20210717
  Serious: Yes (Hospitalization)
  Sender: FDA-Public Use
  Company Number: US-GILEAD-2021-0530753

PATIENT
  Age: 49 Year
  Sex: Male

DRUGS (3)
  1. KALYDECO [Concomitant]
     Active Substance: IVACAFTOR
     Dosage: KALYDECO 150MG TABS
  2. AZTREONAM LYSINE [Suspect]
     Active Substance: AZTREONAM LYSINE
     Indication: CYSTIC FIBROSIS
     Dosage: 75 MG, TID, 28 DAYS ON AND 28 DAYS OFF
     Route: 055
  3. PULMOZYME [Concomitant]
     Active Substance: DORNASE ALFA
     Dosage: PULMOZYME 1 MG/ML SOLUTION

REACTIONS (1)
  - Carbon dioxide increased [Unknown]

NARRATIVE: CASE EVENT DATE: 202104
